FAERS Safety Report 5859583-7 (Version None)
Quarter: 2008Q3

REPORT INFORMATION
  Report Type: 
  Country: None (occurrence: None)
  Receive Date: 20080827
  Receipt Date: 20080822
  Transmission Date: 20090109
  Serious: Yes (Other)
  Sender: FDA-Public Use
  Company Number: D0058456A

PATIENT
  Sex: Female

DRUGS (1)
  1. TYVERB [Suspect]
     Route: 048

REACTIONS (1)
  - APHASIA [None]
